FAERS Safety Report 23846562 (Version 1)
Quarter: 2024Q2

REPORT INFORMATION
  Report Type: Spontaneous
  Country: IE (occurrence: IE)
  Receive Date: 20240513
  Receipt Date: 20240513
  Transmission Date: 20240716
  Serious: Yes (Life-Threatening, Hospitalization, Disabling, Other)
  Sender: FDA-Public Use
  Company Number: None

PATIENT
  Age: 37 Year
  Sex: Female
  Weight: 90 kg

DRUGS (3)
  1. JARDIANCE [Concomitant]
     Active Substance: EMPAGLIFLOZIN
     Indication: Type 2 diabetes mellitus
     Dosage: UNK
     Dates: start: 2018
  2. JARDIANCE [Concomitant]
     Active Substance: EMPAGLIFLOZIN
     Dosage: 25 MG, QD
     Dates: start: 20200901
  3. OZEMPIC [Suspect]
     Active Substance: SEMAGLUTIDE
     Indication: Type 2 diabetes mellitus
     Dosage: 1 MG, QW
     Route: 058
     Dates: start: 20231201, end: 20240325

REACTIONS (11)
  - Vomiting [Recovered/Resolved]
  - Emotional distress [Recovered/Resolved]
  - Dehydration [Not Recovered/Not Resolved]
  - Presyncope [Not Recovered/Not Resolved]
  - Abdominal distension [Recovered/Resolved]
  - Nausea [Recovered/Resolved]
  - Impaired quality of life [Recovered/Resolved]
  - Loss of personal independence in daily activities [Recovered/Resolved]
  - Abdominal pain [Recovered/Resolved]
  - Asthenia [Not Recovered/Not Resolved]
  - Eructation [Not Recovered/Not Resolved]

NARRATIVE: CASE EVENT DATE: 20231201
